FAERS Safety Report 17717527 (Version 4)
Quarter: 2020Q2

REPORT INFORMATION
  Report Type: Spontaneous
  Country: IR (occurrence: IR)
  Receive Date: 20200428
  Receipt Date: 20200520
  Transmission Date: 20200714
  Serious: Yes (Life-Threatening, Hospitalization, Other)
  Sender: FDA-Public Use
  Company Number: IR-PFIZER INC-2020166486

PATIENT
  Age: 19 Year
  Sex: Female
  Weight: 54 kg

DRUGS (6)
  1. SALINE [SODIUM CHLORIDE] [Concomitant]
     Active Substance: SODIUM CHLORIDE
     Indication: FLUID REPLACEMENT
     Dosage: 6 L
  2. CLINDAMYCIN PHOSPHATE. [Suspect]
     Active Substance: CLINDAMYCIN PHOSPHATE
     Indication: ABORTION INFECTED
     Dosage: 900 MG, 3X/DAY
     Route: 042
  3. RINGER LACTATED [Concomitant]
     Dosage: 2 L
  4. OXYTOCIN. [Concomitant]
     Active Substance: OXYTOCIN
     Dosage: 30 UNITS IN ONE LITER RINGER^S LACTATE, DROP
  5. GENTAMICIN. [Suspect]
     Active Substance: GENTAMICIN
     Indication: ABORTION INFECTED
     Dosage: 80 MG, 3X/DAY
     Route: 042
  6. RINGER LACTATED [Concomitant]
     Indication: FLUID REPLACEMENT
     Dosage: 1 L; OXYTOCIN DROP WAS ADMINISTERED DROP (30 UNITS IN ONE LITER RINGER^S LACTATE)

REACTIONS (3)
  - Sinus bradycardia [Recovered/Resolved]
  - Drug ineffective [Recovered/Resolved]
  - Chest pain [Recovered/Resolved]
